FAERS Safety Report 16047329 (Version 2)
Quarter: 2019Q1

REPORT INFORMATION
  Report Type: Spontaneous
  Country: CN (occurrence: CN)
  Receive Date: 20190307
  Receipt Date: 20190314
  Transmission Date: 20190418
  Serious: Yes (Other)
  Sender: FDA-Public Use
  Company Number: CN-PFIZER INC-2019102077

PATIENT
  Age: 77 Year
  Sex: Female

DRUGS (1)
  1. MEPEM [Suspect]
     Active Substance: MEROPENEM
     Dosage: 1 G, 2X/DAY
     Dates: start: 20181020, end: 20181027

REACTIONS (1)
  - Epilepsy [Recovering/Resolving]

NARRATIVE: CASE EVENT DATE: 20181027
